FAERS Safety Report 16802820 (Version 1)
Quarter: 2019Q3

REPORT INFORMATION
  Report Type: Report from Study
  Country: None (occurrence: CA)
  Receive Date: 20190912
  Receipt Date: 20190912
  Transmission Date: 20191005
  Serious: Yes (Hospitalization, Other)
  Sender: FDA-Public Use
  Company Number: CA-ABBVIE-19K-028-2795687-00

PATIENT
  Sex: Male

DRUGS (1)
  1. MAVIRET [Suspect]
     Active Substance: GLECAPREVIR\PIBRENTASVIR
     Indication: CHRONIC HEPATITIS C
     Route: 048
     Dates: start: 20190514, end: 201908

REACTIONS (16)
  - Dyspnoea [Recovered/Resolved]
  - Abdominal discomfort [Unknown]
  - Gastrointestinal obstruction [Unknown]
  - Nausea [Unknown]
  - Chills [Unknown]
  - Viral infection [Unknown]
  - Nasopharyngitis [Not Recovered/Not Resolved]
  - Constipation [Unknown]
  - Malaise [Recovered/Resolved]
  - Panic attack [Not Recovered/Not Resolved]
  - Renal disorder [Recovering/Resolving]
  - Malaise [Unknown]
  - Blood pressure measurement [Unknown]
  - Anxiety [Unknown]
  - Decreased appetite [Unknown]
  - Asthenia [Unknown]

NARRATIVE: CASE EVENT DATE: 2019
